FAERS Safety Report 14829924 (Version 1)
Quarter: 2018Q2

REPORT INFORMATION
  Report Type: Other
  Country: CH (occurrence: CH)
  Receive Date: 20180430
  Receipt Date: 20180430
  Transmission Date: 20180711
  Serious: Yes (Other)
  Sender: FDA-Public Use
  Company Number: CH-HQ SPECIALTY-CH-2018INT000072

PATIENT
  Age: 6 Year
  Sex: Female
  Weight: 24 kg

DRUGS (12)
  1. DISOPRIVAN [Suspect]
     Active Substance: PROPOFOL
     Indication: ANAESTHESIA PROCEDURE
     Dosage: POSOLOGY NOT AVAILABLE (ANAESTHESIA SHEET NOT READABLE)
     Route: 042
     Dates: start: 20180404, end: 20180404
  2. EPHEDRINE HYDROCHLORIDE [Suspect]
     Active Substance: EPHEDRINE HYDROCHLORIDE
     Indication: ANAESTHESIA PROCEDURE
     Dosage: POSOLOGY NOT AVAILABLE (ANAESTHESIA SHEET NOT READABLE)
     Route: 042
     Dates: start: 20180404, end: 20180404
  3. ATROPINE. [Suspect]
     Active Substance: ATROPINE
     Indication: ANAESTHESIA PROCEDURE
     Dosage: POSOLOGY NOT AVAILABLE (ANAESTHESIA SHEET NOT READABLE)
     Route: 042
     Dates: start: 20180404, end: 20180404
  4. REMIFENTANIL [Suspect]
     Active Substance: REMIFENTANIL
     Indication: PRODUCT USED FOR UNKNOWN INDICATION
     Dosage: POSOLOGY NOT AVAILABLE (ANAESTHESIA SHEET NOT READABLE)
     Route: 042
     Dates: start: 20180404, end: 20180404
  5. MORPHINE HYDROCHLORIDE [Suspect]
     Active Substance: MORPHINE HYDROCHLORIDE
     Dosage: 1 MG, UNK
     Route: 042
     Dates: start: 20180404
  6. TRACRIUM [Suspect]
     Active Substance: ATRACURIUM BESYLATE
     Indication: ANAESTHESIA PROCEDURE
     Dosage: POSOLOGY NOT AVAILABLE (ANAESTHESIA SHEET NOT READABLE)
     Route: 042
     Dates: start: 20180404, end: 20180404
  7. AMOXICILLIN AND CLAVULANATE POTASSIUM [Suspect]
     Active Substance: AMOXICILLIN\CLAVULANATE POTASSIUM
     Indication: INFECTION PROPHYLAXIS
     Dosage: UNK
     Route: 042
     Dates: start: 20180404
  8. RAPIFEN                            /00109201/ [Suspect]
     Active Substance: IBUPROFEN
     Indication: ANAESTHESIA PROCEDURE
     Dosage: POSOLOGY NOT AVAILABLE (ANAESTHESIA SHEET NOT READABLE)
     Route: 042
     Dates: start: 20180404, end: 20180404
  9. NEOSTIGMINE [Suspect]
     Active Substance: NEOSTIGMINE
     Indication: ANAESTHESIA PROCEDURE
     Dosage: POSOLOGY NOT AVAILABLE (ANAESTHESIA SHEET NOT READABLE)
     Route: 042
     Dates: start: 20180404, end: 20180404
  10. MORPHINE HYDROCHLORIDE [Suspect]
     Active Substance: MORPHINE HYDROCHLORIDE
     Indication: ANAESTHESIA PROCEDURE
     Dosage: 2 MG, (1 IN 1 D)
     Route: 041
     Dates: start: 20180404, end: 20180404
  11. MORPHINE HYDROCHLORIDE [Suspect]
     Active Substance: MORPHINE HYDROCHLORIDE
     Dosage: 1 MG, UNK
     Route: 042
     Dates: start: 20180404
  12. DEXMEDETOMIDINE HYDROCHLORIDE. [Suspect]
     Active Substance: DEXMEDETOMIDINE HYDROCHLORIDE
     Indication: ANAESTHESIA PROCEDURE
     Dosage: POSOLOGY NOT AVAILABLE (ANAESTHESIA SHEET NOT READABLE)
     Route: 042
     Dates: start: 20180404, end: 20180404

REACTIONS (4)
  - Drug administered to patient of inappropriate age [Unknown]
  - Rash papular [Recovered/Resolved]
  - Infusion site rash [Recovered/Resolved]
  - Angioedema [Recovered/Resolved]

NARRATIVE: CASE EVENT DATE: 20180404
